FAERS Safety Report 9416961 (Version 4)
Quarter: 2013Q3

REPORT INFORMATION
  Report Type: Report from Study
  Country: IL (occurrence: IL)
  Receive Date: 20130724
  Receipt Date: 20130815
  Transmission Date: 20140515
  Serious: Yes (Death, Hospitalization)
  Sender: FDA-Public Use
  Company Number: IL-BAYER-2013-043967

PATIENT
  Age: 50 Year
  Sex: Male
  Weight: 64 kg

DRUGS (24)
  1. REGORAFENIB [Suspect]
     Indication: COLORECTAL CANCER
     Dosage: 40MG X 4= 160 MG
     Route: 048
     Dates: start: 20130130, end: 20130219
  2. REGORAFENIB [Suspect]
     Indication: COLORECTAL CANCER
     Dosage: 40MG X 4= 160 MG
     Route: 048
     Dates: start: 20130227, end: 20130319
  3. MODECATE [Concomitant]
     Indication: SCHIZOPHRENIA
     Dosage: 175 MG EVERY TWO WEEKS
     Route: 030
     Dates: start: 2000
  4. CLEXANE [Concomitant]
     Indication: THROMBOSIS PROPHYLAXIS
     Dosage: 100 MG, QD
     Route: 058
     Dates: start: 201207
  5. CIPRALEX [Concomitant]
     Indication: DEPRESSION
     Dosage: 20 MG, BID
     Route: 048
     Dates: start: 201207, end: 2013
  6. CIPRALEX [Concomitant]
     Indication: DEPRESSION
     Dosage: 20 MG, QD
     Route: 048
     Dates: start: 20130327
  7. OMEPRADEX [Concomitant]
     Indication: DECREASED APPETITE
     Dosage: 20 MG, BID
     Route: 048
     Dates: start: 201301
  8. OXYCOD [Concomitant]
     Indication: PAIN
     Dosage: 4 CC PRN
     Route: 048
     Dates: start: 201207, end: 201301
  9. OXYCOD [Concomitant]
     Indication: PAIN
     Dosage: 7 CC QD
     Route: 048
     Dates: start: 20130226, end: 20130226
  10. TARGIN [Concomitant]
     Indication: PAIN
     Dosage: 1 MG, BID
     Route: 048
     Dates: start: 20130123, end: 201302
  11. TARGIN [Concomitant]
     Indication: PAIN
     Dosage: 2 MG, BID
     Route: 048
     Dates: start: 20130207, end: 20130320
  12. TARGIN [Concomitant]
     Indication: PAIN
     Dosage: 1 DF, TID
     Route: 048
     Dates: start: 20130321
  13. PERCOCET [Concomitant]
     Indication: PAIN
     Dosage: 100 MG, PRN
     Route: 048
     Dates: start: 20130123
  14. VENLAFAXINE HYDROCHLORIDE [Concomitant]
     Indication: DEPRESSION
     Dosage: 75 MG, QD
     Route: 048
     Dates: start: 201302
  15. OPTALGIN [Concomitant]
     Indication: PAIN
     Dosage: 5 CC QD
     Route: 048
     Dates: start: 20130226, end: 20130226
  16. OXYCODONE [Concomitant]
     Dosage: 10 MG, QD
     Route: 048
     Dates: start: 20130327
  17. FENTANYL [Concomitant]
     Indication: PAIN
     Dosage: EVERY THREE DAYS
     Route: 062
     Dates: start: 20130327
  18. BONDORMIN [Concomitant]
     Indication: PROPHYLAXIS
     Dosage: 0.26 MG, QD
     Route: 048
     Dates: start: 20130327
  19. NYSTATIN [Concomitant]
     Indication: INFECTIVE GLOSSITIS
     Dosage: 4 MG, PRN
     Route: 048
     Dates: start: 20130327
  20. TAROCTYL [Concomitant]
     Indication: SCHIZOPHRENIA
     Dosage: 25 MG, QD
     Route: 048
     Dates: start: 20130327
  21. AVILAC [Concomitant]
     Indication: CONSTIPATION
     Dosage: 30 ML, QD
     Route: 048
     Dates: start: 20130327
  22. FUSID [Concomitant]
     Indication: PROPHYLAXIS
     Dosage: 40 MG, BID
     Route: 048
     Dates: start: 20130327
  23. DEXAMETHASONE [Concomitant]
     Indication: FATIGUE
     Dosage: 4 MG, QD
     Route: 048
     Dates: start: 2013, end: 2013
  24. DEXAMETHASONE [Concomitant]
     Indication: FATIGUE
     Dosage: 2 MG, QD
     Route: 048
     Dates: start: 2013

REACTIONS (4)
  - General physical health deterioration [Fatal]
  - Hyperkalaemia [Not Recovered/Not Resolved]
  - Fatigue [Recovered/Resolved]
  - Hyponatraemia [Recovered/Resolved]
